FAERS Safety Report 7091989-3 (Version None)
Quarter: 2010Q4

REPORT INFORMATION
  Report Type: 
  Country: None (occurrence: None)
  Receive Date: 20101109
  Receipt Date: 20101028
  Transmission Date: 20110411
  Serious: Yes (Other)
  Sender: FDA-Public Use
  Company Number: US-CELGENEUS-163-21880-10103131

PATIENT
  Sex: Female

DRUGS (3)
  1. REVLIMID [Suspect]
     Indication: MULTIPLE MYELOMA
     Route: 048
     Dates: start: 20100101
  2. REVLIMID [Suspect]
     Route: 048
     Dates: start: 20091101
  3. REVLIMID [Suspect]
     Dosage: 10MG-15MG-25MG
     Route: 048
     Dates: start: 20090301

REACTIONS (3)
  - DEAFNESS [None]
  - DYSGEUSIA [None]
  - VISUAL ACUITY REDUCED [None]
